FAERS Safety Report 6646184-6 (Version None)
Quarter: 2010Q1

REPORT INFORMATION
  Report Type: 
  Country: None (occurrence: None)
  Receive Date: 20100323
  Receipt Date: 20100311
  Transmission Date: 20100710
  Serious: Yes (Hospitalization)
  Sender: FDA-Public Use
  Company Number: NL-PFIZER INC-2010025908

PATIENT
  Age: 87 Year
  Sex: Male
  Weight: 71 kg

DRUGS (7)
  1. BLINDED *NO SUBJECT DRUG [Suspect]
     Indication: CARDIAC FAILURE
     Dosage: UNK
     Route: 048
     Dates: start: 20070626, end: 20090630
  2. BLINDED *PLACEBO [Suspect]
     Indication: CARDIAC FAILURE
     Dosage: UNK
     Route: 048
     Dates: start: 20070626, end: 20090630
  3. BLINDED EPLERENONE [Suspect]
     Indication: CARDIAC FAILURE
     Dosage: UNK
     Route: 048
     Dates: start: 20070626, end: 20090630
  4. BISOPROLOL [Suspect]
     Dosage: UNK
     Route: 048
     Dates: start: 20070604, end: 20091201
  5. PERINDOPRIL [Concomitant]
     Dosage: UNK
     Route: 048
     Dates: start: 20070925, end: 20100115
  6. FUROSEMIDE [Concomitant]
     Dosage: UNK
     Route: 048
     Dates: start: 20070605
  7. ACENOCOUMAROL [Concomitant]
     Dosage: UNK
     Route: 048
     Dates: start: 20050822

REACTIONS (1)
  - ATRIOVENTRICULAR BLOCK [None]
